FAERS Safety Report 25822984 (Version 1)
Quarter: 2025Q3

REPORT INFORMATION
  Report Type: Spontaneous
  Country: JP (occurrence: JP)
  Receive Date: 20250919
  Receipt Date: 20250919
  Transmission Date: 20251020
  Serious: Yes (Death, Life-Threatening)
  Sender: MYLAN
  Company Number: JP-MYLANLABS-2025M1078136

PATIENT
  Age: 70 Year
  Sex: Female
  Weight: 46.2 kg

DRUGS (108)
  1. MYCOPHENOLATE MOFETIL [Suspect]
     Active Substance: MYCOPHENOLATE MOFETIL
     Indication: Antisynthetase syndrome
     Dosage: 1000 MILLIGRAM, QD
     Dates: start: 20250220, end: 20250306
  2. MYCOPHENOLATE MOFETIL [Suspect]
     Active Substance: MYCOPHENOLATE MOFETIL
     Dosage: 1000 MILLIGRAM, QD
     Dates: start: 20250220, end: 20250306
  3. MYCOPHENOLATE MOFETIL [Suspect]
     Active Substance: MYCOPHENOLATE MOFETIL
     Dosage: 1000 MILLIGRAM, QD
     Route: 048
     Dates: start: 20250220, end: 20250306
  4. MYCOPHENOLATE MOFETIL [Suspect]
     Active Substance: MYCOPHENOLATE MOFETIL
     Dosage: 1000 MILLIGRAM, QD
     Route: 048
     Dates: start: 20250220, end: 20250306
  5. MYCOPHENOLATE MOFETIL [Suspect]
     Active Substance: MYCOPHENOLATE MOFETIL
     Dosage: 1500 MILLIGRAM, QD
     Dates: start: 20250307, end: 20250325
  6. MYCOPHENOLATE MOFETIL [Suspect]
     Active Substance: MYCOPHENOLATE MOFETIL
     Dosage: 1500 MILLIGRAM, QD
     Dates: start: 20250307, end: 20250325
  7. MYCOPHENOLATE MOFETIL [Suspect]
     Active Substance: MYCOPHENOLATE MOFETIL
     Dosage: 1500 MILLIGRAM, QD
     Route: 048
     Dates: start: 20250307, end: 20250325
  8. MYCOPHENOLATE MOFETIL [Suspect]
     Active Substance: MYCOPHENOLATE MOFETIL
     Dosage: 1500 MILLIGRAM, QD
     Route: 048
     Dates: start: 20250307, end: 20250325
  9. TACROLIMUS [Suspect]
     Active Substance: TACROLIMUS
     Indication: Antisynthetase syndrome
     Dosage: 4 MILLIGRAM, QD
     Dates: start: 20250225, end: 20250310
  10. TACROLIMUS [Suspect]
     Active Substance: TACROLIMUS
     Dosage: 4 MILLIGRAM, QD
     Dates: start: 20250225, end: 20250310
  11. TACROLIMUS [Suspect]
     Active Substance: TACROLIMUS
     Dosage: 4 MILLIGRAM, QD
     Route: 048
     Dates: start: 20250225, end: 20250310
  12. TACROLIMUS [Suspect]
     Active Substance: TACROLIMUS
     Dosage: 4 MILLIGRAM, QD
     Route: 048
     Dates: start: 20250225, end: 20250310
  13. TACROLIMUS [Suspect]
     Active Substance: TACROLIMUS
     Dosage: 3 MILLIGRAM, QD
     Dates: start: 20250310, end: 20250325
  14. TACROLIMUS [Suspect]
     Active Substance: TACROLIMUS
     Dosage: 3 MILLIGRAM, QD
     Dates: start: 20250310, end: 20250325
  15. TACROLIMUS [Suspect]
     Active Substance: TACROLIMUS
     Dosage: 3 MILLIGRAM, QD
     Route: 048
     Dates: start: 20250310, end: 20250325
  16. TACROLIMUS [Suspect]
     Active Substance: TACROLIMUS
     Dosage: 3 MILLIGRAM, QD
     Route: 048
     Dates: start: 20250310, end: 20250325
  17. PREDONINE [Suspect]
     Active Substance: PREDNISOLONE
     Indication: Antisynthetase syndrome
     Dosage: 45 MILLIGRAM, QD
     Dates: start: 20250218, end: 20250305
  18. PREDONINE [Suspect]
     Active Substance: PREDNISOLONE
     Dosage: 45 MILLIGRAM, QD
     Dates: start: 20250218, end: 20250305
  19. PREDONINE [Suspect]
     Active Substance: PREDNISOLONE
     Dosage: 45 MILLIGRAM, QD
     Route: 048
     Dates: start: 20250218, end: 20250305
  20. PREDONINE [Suspect]
     Active Substance: PREDNISOLONE
     Dosage: 45 MILLIGRAM, QD
     Route: 048
     Dates: start: 20250218, end: 20250305
  21. PREDONINE [Suspect]
     Active Substance: PREDNISOLONE
     Dosage: 35 MILLIGRAM, QD
     Dates: start: 20250306, end: 20250319
  22. PREDONINE [Suspect]
     Active Substance: PREDNISOLONE
     Dosage: 35 MILLIGRAM, QD
     Dates: start: 20250306, end: 20250319
  23. PREDONINE [Suspect]
     Active Substance: PREDNISOLONE
     Dosage: 35 MILLIGRAM, QD
     Route: 048
     Dates: start: 20250306, end: 20250319
  24. PREDONINE [Suspect]
     Active Substance: PREDNISOLONE
     Dosage: 35 MILLIGRAM, QD
     Route: 048
     Dates: start: 20250306, end: 20250319
  25. PREDONINE [Suspect]
     Active Substance: PREDNISOLONE
     Dosage: 30 MILLIGRAM, QD
     Dates: start: 20250320, end: 20250325
  26. PREDONINE [Suspect]
     Active Substance: PREDNISOLONE
     Dosage: 30 MILLIGRAM, QD
     Route: 048
     Dates: start: 20250320, end: 20250325
  27. PREDONINE [Suspect]
     Active Substance: PREDNISOLONE
     Dosage: 30 MILLIGRAM, QD
     Dates: start: 20250320, end: 20250325
  28. PREDONINE [Suspect]
     Active Substance: PREDNISOLONE
     Dosage: 30 MILLIGRAM, QD
     Route: 048
     Dates: start: 20250320, end: 20250325
  29. ATORVASTATIN [Concomitant]
     Active Substance: ATORVASTATIN
     Indication: Product used for unknown indication
  30. ATORVASTATIN [Concomitant]
     Active Substance: ATORVASTATIN
     Route: 065
  31. ATORVASTATIN [Concomitant]
     Active Substance: ATORVASTATIN
     Route: 065
  32. ATORVASTATIN [Concomitant]
     Active Substance: ATORVASTATIN
  33. LORATADINE [Concomitant]
     Active Substance: LORATADINE
     Indication: Product used for unknown indication
  34. LORATADINE [Concomitant]
     Active Substance: LORATADINE
     Route: 065
  35. LORATADINE [Concomitant]
     Active Substance: LORATADINE
     Route: 065
  36. LORATADINE [Concomitant]
     Active Substance: LORATADINE
  37. MAGNESIUM OXIDE [Concomitant]
     Active Substance: MAGNESIUM OXIDE
     Indication: Product used for unknown indication
  38. MAGNESIUM OXIDE [Concomitant]
     Active Substance: MAGNESIUM OXIDE
     Route: 065
  39. MAGNESIUM OXIDE [Concomitant]
     Active Substance: MAGNESIUM OXIDE
     Route: 065
  40. MAGNESIUM OXIDE [Concomitant]
     Active Substance: MAGNESIUM OXIDE
  41. RABEPRAZOLE SODIUM [Concomitant]
     Active Substance: RABEPRAZOLE SODIUM
     Indication: Product used for unknown indication
  42. RABEPRAZOLE SODIUM [Concomitant]
     Active Substance: RABEPRAZOLE SODIUM
     Route: 065
  43. RABEPRAZOLE SODIUM [Concomitant]
     Active Substance: RABEPRAZOLE SODIUM
     Route: 065
  44. RABEPRAZOLE SODIUM [Concomitant]
     Active Substance: RABEPRAZOLE SODIUM
  45. ELDECALCITOL [Concomitant]
     Active Substance: ELDECALCITOL
     Indication: Product used for unknown indication
  46. ELDECALCITOL [Concomitant]
     Active Substance: ELDECALCITOL
     Route: 065
  47. ELDECALCITOL [Concomitant]
     Active Substance: ELDECALCITOL
     Route: 065
  48. ELDECALCITOL [Concomitant]
     Active Substance: ELDECALCITOL
  49. Heparinoid [Concomitant]
     Indication: Product used for unknown indication
  50. Heparinoid [Concomitant]
     Route: 065
  51. Heparinoid [Concomitant]
     Route: 065
  52. Heparinoid [Concomitant]
  53. AMLODIPINE BESYLATE [Concomitant]
     Active Substance: AMLODIPINE BESYLATE
     Indication: Product used for unknown indication
  54. AMLODIPINE BESYLATE [Concomitant]
     Active Substance: AMLODIPINE BESYLATE
     Route: 065
  55. AMLODIPINE BESYLATE [Concomitant]
     Active Substance: AMLODIPINE BESYLATE
     Route: 065
  56. AMLODIPINE BESYLATE [Concomitant]
     Active Substance: AMLODIPINE BESYLATE
  57. BISACODYL [Concomitant]
     Active Substance: BISACODYL
     Indication: Product used for unknown indication
  58. BISACODYL [Concomitant]
     Active Substance: BISACODYL
     Route: 065
  59. BISACODYL [Concomitant]
     Active Substance: BISACODYL
     Route: 065
  60. BISACODYL [Concomitant]
     Active Substance: BISACODYL
  61. GLYCERIN [Concomitant]
     Active Substance: GLYCERIN
     Indication: Product used for unknown indication
  62. GLYCERIN [Concomitant]
     Active Substance: GLYCERIN
     Route: 065
  63. GLYCERIN [Concomitant]
     Active Substance: GLYCERIN
     Route: 065
  64. GLYCERIN [Concomitant]
     Active Substance: GLYCERIN
  65. Hemoporison [Concomitant]
     Indication: Product used for unknown indication
  66. Hemoporison [Concomitant]
     Route: 065
  67. Hemoporison [Concomitant]
     Route: 065
  68. Hemoporison [Concomitant]
  69. PETROLATUM [Concomitant]
     Active Substance: PETROLATUM
     Indication: Product used for unknown indication
  70. PETROLATUM [Concomitant]
     Active Substance: PETROLATUM
     Route: 065
  71. PETROLATUM [Concomitant]
     Active Substance: PETROLATUM
     Route: 065
  72. PETROLATUM [Concomitant]
     Active Substance: PETROLATUM
  73. ELOBIXIBAT [Concomitant]
     Active Substance: ELOBIXIBAT
     Indication: Product used for unknown indication
  74. ELOBIXIBAT [Concomitant]
     Active Substance: ELOBIXIBAT
     Route: 065
  75. ELOBIXIBAT [Concomitant]
     Active Substance: ELOBIXIBAT
     Route: 065
  76. ELOBIXIBAT [Concomitant]
     Active Substance: ELOBIXIBAT
  77. ALENDRONATE SODIUM [Concomitant]
     Active Substance: ALENDRONATE SODIUM
     Indication: Product used for unknown indication
  78. ALENDRONATE SODIUM [Concomitant]
     Active Substance: ALENDRONATE SODIUM
     Route: 065
  79. ALENDRONATE SODIUM [Concomitant]
     Active Substance: ALENDRONATE SODIUM
     Route: 065
  80. ALENDRONATE SODIUM [Concomitant]
     Active Substance: ALENDRONATE SODIUM
  81. Azunol [Concomitant]
     Indication: Product used for unknown indication
  82. Azunol [Concomitant]
     Route: 065
  83. Azunol [Concomitant]
     Route: 065
  84. Azunol [Concomitant]
  85. LIDOCAINE [Concomitant]
     Active Substance: LIDOCAINE
  86. LIDOCAINE [Concomitant]
     Active Substance: LIDOCAINE
     Route: 065
  87. LIDOCAINE [Concomitant]
     Active Substance: LIDOCAINE
     Route: 065
  88. LIDOCAINE [Concomitant]
     Active Substance: LIDOCAINE
  89. FUNGIZONE [Concomitant]
     Active Substance: AMPHOTERICIN B
     Indication: Product used for unknown indication
  90. FUNGIZONE [Concomitant]
     Active Substance: AMPHOTERICIN B
     Route: 065
  91. FUNGIZONE [Concomitant]
     Active Substance: AMPHOTERICIN B
     Route: 065
  92. FUNGIZONE [Concomitant]
     Active Substance: AMPHOTERICIN B
  93. CARBOHYDRATES\FATTY ACIDS\MINERALS\PROTEIN\VITAMINS [Concomitant]
     Active Substance: CARBOHYDRATES\FATTY ACIDS\MINERALS\PROTEIN\VITAMINS
     Indication: Product used for unknown indication
  94. CARBOHYDRATES\FATTY ACIDS\MINERALS\PROTEIN\VITAMINS [Concomitant]
     Active Substance: CARBOHYDRATES\FATTY ACIDS\MINERALS\PROTEIN\VITAMINS
     Route: 065
  95. CARBOHYDRATES\FATTY ACIDS\MINERALS\PROTEIN\VITAMINS [Concomitant]
     Active Substance: CARBOHYDRATES\FATTY ACIDS\MINERALS\PROTEIN\VITAMINS
     Route: 065
  96. CARBOHYDRATES\FATTY ACIDS\MINERALS\PROTEIN\VITAMINS [Concomitant]
     Active Substance: CARBOHYDRATES\FATTY ACIDS\MINERALS\PROTEIN\VITAMINS
  97. ACETAMINOPHEN [Concomitant]
     Active Substance: ACETAMINOPHEN
     Indication: Product used for unknown indication
  98. ACETAMINOPHEN [Concomitant]
     Active Substance: ACETAMINOPHEN
     Route: 065
  99. ACETAMINOPHEN [Concomitant]
     Active Substance: ACETAMINOPHEN
     Route: 065
  100. ACETAMINOPHEN [Concomitant]
     Active Substance: ACETAMINOPHEN
  101. PENTAZOCINE [Concomitant]
     Active Substance: PENTAZOCINE
     Indication: Product used for unknown indication
  102. PENTAZOCINE [Concomitant]
     Active Substance: PENTAZOCINE
     Route: 065
  103. PENTAZOCINE [Concomitant]
     Active Substance: PENTAZOCINE
     Route: 065
  104. PENTAZOCINE [Concomitant]
     Active Substance: PENTAZOCINE
  105. ATARAX [Concomitant]
     Active Substance: HYDROXYZINE HYDROCHLORIDE
     Indication: Product used for unknown indication
  106. ATARAX [Concomitant]
     Active Substance: HYDROXYZINE HYDROCHLORIDE
     Route: 065
  107. ATARAX [Concomitant]
     Active Substance: HYDROXYZINE HYDROCHLORIDE
     Route: 065
  108. ATARAX [Concomitant]
     Active Substance: HYDROXYZINE HYDROCHLORIDE

REACTIONS (6)
  - Respiratory failure [Fatal]
  - Pneumonia cytomegaloviral [Not Recovered/Not Resolved]
  - Cytomegalovirus infection [Not Recovered/Not Resolved]
  - Intestinal obstruction [Not Recovered/Not Resolved]
  - Intestinal strangulation [Not Recovered/Not Resolved]
  - Off label use [Unknown]

NARRATIVE: CASE EVENT DATE: 20250325
